FAERS Safety Report 25659633 (Version 1)
Quarter: 2025Q3

REPORT INFORMATION
  Report Type: Report from Study
  Country: US (occurrence: US)
  Receive Date: 20250808
  Receipt Date: 20250808
  Transmission Date: 20251021
  Serious: Yes (Life-Threatening, Hospitalization)
  Sender: MYLAN
  Company Number: US-MYLANLABS-2025M1065513

PATIENT
  Age: 19 Year
  Sex: Female

DRUGS (16)
  1. PREDNISONE [Suspect]
     Active Substance: PREDNISONE
     Indication: Product used for unknown indication
  2. PREDNISONE [Suspect]
     Active Substance: PREDNISONE
     Route: 048
  3. PREDNISONE [Suspect]
     Active Substance: PREDNISONE
     Route: 048
  4. PREDNISONE [Suspect]
     Active Substance: PREDNISONE
  5. BENZONATATE [Suspect]
     Active Substance: BENZONATATE
     Indication: Product used for unknown indication
  6. BENZONATATE [Suspect]
     Active Substance: BENZONATATE
     Route: 048
  7. BENZONATATE [Suspect]
     Active Substance: BENZONATATE
     Route: 048
  8. BENZONATATE [Suspect]
     Active Substance: BENZONATATE
  9. CEPHALEXIN [Suspect]
     Active Substance: CEPHALEXIN
     Indication: Product used for unknown indication
  10. CEPHALEXIN [Suspect]
     Active Substance: CEPHALEXIN
     Route: 048
  11. CEPHALEXIN [Suspect]
     Active Substance: CEPHALEXIN
     Route: 048
  12. CEPHALEXIN [Suspect]
     Active Substance: CEPHALEXIN
  13. BUPROPION [Suspect]
     Active Substance: BUPROPION
     Indication: Product used for unknown indication
  14. BUPROPION [Suspect]
     Active Substance: BUPROPION
     Route: 048
  15. BUPROPION [Suspect]
     Active Substance: BUPROPION
     Route: 048
  16. BUPROPION [Suspect]
     Active Substance: BUPROPION

REACTIONS (1)
  - Intentional product use issue [Unknown]
